FAERS Safety Report 7439260-1 (Version None)
Quarter: 2011Q2

REPORT INFORMATION
  Report Type: 
  Country: None (occurrence: None)
  Receive Date: 20110420
  Receipt Date: 20110420
  Transmission Date: 20111010
  Serious: Yes (Disabling)
  Sender: FDA-Public Use
  Company Number: None

PATIENT
  Sex: Male
  Weight: 95.7 kg

DRUGS (11)
  1. NORVASC [Concomitant]
  2. TYGACIL [Concomitant]
  3. NYSTATIN PUMP [Concomitant]
  4. MORPHINE [Concomitant]
  5. SOLU-MEDROL [Suspect]
  6. ACETAMINOPHEN [Concomitant]
  7. PROTONIX [Concomitant]
  8. PHENERGAN HCL [Concomitant]
  9. SOLU-MEDROL [Suspect]
     Indication: PREMEDICATION
     Dosage: 80MG ONE TIME IV   ONE TIME DOSE
     Route: 042
     Dates: start: 20110418, end: 20110418
  10. ZOFRAN [Concomitant]
  11. PERCOCET [Concomitant]

REACTIONS (5)
  - FLUSHING [None]
  - CHILLS [None]
  - PULMONARY EMBOLISM [None]
  - PLEURAL EFFUSION [None]
  - BODY TEMPERATURE INCREASED [None]
